FAERS Safety Report 6571200-X (Version None)
Quarter: 2010Q1

REPORT INFORMATION
  Report Type: 
  Country: None (occurrence: None)
  Receive Date: 20100204
  Receipt Date: 20090609
  Transmission Date: 20100710
  Serious: Yes (Other)
  Sender: FDA-Public Use
  Company Number: GB-GENENTECH-282104

PATIENT
  Sex: Female

DRUGS (7)
  1. XOLAIR [Suspect]
     Indication: ASTHMA
     Dosage: 300 MG, UNK
     Route: 058
  2. PREDNISOLONE [Concomitant]
     Indication: DRUG USE FOR UNKNOWN INDICATION
  3. ALBUTEROL [Concomitant]
     Indication: DRUG USE FOR UNKNOWN INDICATION
  4. ATROVENT [Concomitant]
     Indication: DRUG USE FOR UNKNOWN INDICATION
  5. SEREVENT [Concomitant]
     Indication: DRUG USE FOR UNKNOWN INDICATION
  6. PHYLLOCONTIN [Concomitant]
     Indication: DRUG USE FOR UNKNOWN INDICATION
  7. SINGULAIR [Concomitant]
     Indication: DRUG USE FOR UNKNOWN INDICATION

REACTIONS (3)
  - ASTHMA [None]
  - DYSPNOEA [None]
  - OROPHARYNGEAL PAIN [None]
